FAERS Safety Report 26064860 (Version 1)
Quarter: 2025Q4

REPORT INFORMATION
  Report Type: Spontaneous
  Country: EU (occurrence: EU)
  Receive Date: 20251119
  Receipt Date: 20251119
  Transmission Date: 20260118
  Serious: Yes (Hospitalization)
  Sender: PFIZER
  Company Number: None

PATIENT
  Age: 47 Year
  Sex: Male
  Weight: 69 kg

DRUGS (6)
  1. FLUCONAZOLE [Suspect]
     Active Substance: FLUCONAZOLE
     Indication: Systemic candida
     Dosage: 400 MG, 1X/DAY
     Route: 042
     Dates: start: 20250829, end: 20251027
  2. TIGECYCLINE [Suspect]
     Active Substance: TIGECYCLINE
     Indication: Stenotrophomonas maltophilia pneumonia
     Dosage: 100 MG, 2X/DAY FREQ:12 H;
     Route: 042
     Dates: start: 20250828, end: 20251014
  3. BACTRIM [Suspect]
     Active Substance: SULFAMETHOXAZOLE\TRIMETHOPRIM
     Indication: Stenotrophomonas maltophilia pneumonia
     Dosage: 800 MG, 1X/DAY FREQ:24 H;
     Route: 042
     Dates: start: 20250827, end: 20250903
  4. BACTRIM [Suspect]
     Active Substance: SULFAMETHOXAZOLE\TRIMETHOPRIM
     Dosage: 800 MG, 4X/DAY FREQ:6 H;
     Route: 042
     Dates: start: 20250904, end: 20250915
  5. BACTRIM [Suspect]
     Active Substance: SULFAMETHOXAZOLE\TRIMETHOPRIM
     Dosage: 1600 MG, 3X/DAY FREQ:8 H;
     Route: 042
     Dates: start: 20250916, end: 20251014
  6. PANTOPRAZOLE [Concomitant]
     Active Substance: PANTOPRAZOLE
     Indication: Gastrooesophageal reflux disease
     Dosage: 40 MG, 1X/DAY FREQ:24 H  THEN SWITCH TO ORAL
     Route: 042
     Dates: start: 20250717

REACTIONS (3)
  - Adrenal insufficiency [Recovered/Resolved]
  - Eosinophilia [Recovered/Resolved]
  - Off label use [Unknown]

NARRATIVE: CASE EVENT DATE: 20250924
